FAERS Safety Report 6986526-5 (Version None)
Quarter: 2010Q3

REPORT INFORMATION
  Report Type: 
  Country: None (occurrence: None)
  Receive Date: 20100827
  Receipt Date: 20091216
  Transmission Date: 20110219
  Serious: Yes (Other)
  Sender: FDA-Public Use
  Company Number: AMAG200900079

PATIENT
  Age: 65 Year
  Sex: Male
  Weight: 143.5 kg

DRUGS (23)
  1. FERAHEME [Suspect]
     Indication: IRON DEFICIENCY ANAEMIA
     Dosage: 510 MG, SINGLE, INTRAVENOUS
     Route: 042
     Dates: start: 20091215
  2. FERAHEME [Suspect]
     Indication: RENAL FAILURE CHRONIC
     Dosage: 510 MG, SINGLE, INTRAVENOUS
     Route: 042
     Dates: start: 20091215
  3. METOLAZONE [Concomitant]
  4. FERROUS GLUCONATE (FERROUS GLUCONATE) [Concomitant]
  5. BENICAR [Concomitant]
  6. VICODIN [Concomitant]
  7. BUMETANIDE [Concomitant]
  8. ACETAMINOPHEN [Concomitant]
  9. LOVAZA [Concomitant]
  10. PLAVIX [Concomitant]
  11. ALLOPURINOL [Concomitant]
  12. ALBUTEROL CFC FREE (SALBUTAMOL) [Concomitant]
  13. ASPIRIN BUFFERED (ACETYLSALICYLIC ACID) [Concomitant]
  14. MULTIVITAMIN [Concomitant]
  15. VYTORIN 10/20 (EZETIMIBE, SIMVASTATIN) [Concomitant]
  16. TRIAMCINOLONE ACETONIDE [Concomitant]
  17. ASCORBIC ACID [Concomitant]
  18. OTHER DERMATOLOGICALS [Concomitant]
  19. HUMALOG [Concomitant]
  20. KLOR-CON 10 (POTASSIUM CHLORIDE) [Concomitant]
  21. TEGADERM [Concomitant]
  22. CARVEDILOL [Concomitant]
  23. SULFAMYLON ACETATE (MAFENIDE ACETATE) [Concomitant]

REACTIONS (1)
  - HYPOTENSION [None]
